FAERS Safety Report 9729778 (Version 3)
Quarter: 2015Q3

REPORT INFORMATION
  Report Type: Spontaneous
  Country: US (occurrence: US)
  Receive Date: 20131204
  Receipt Date: 20150804
  Transmission Date: 20151125
  Serious: No
  Sender: FDA-Public Use
  Company Number: US-GILEAD-2009-0021860

PATIENT
  Age: 70 Year
  Sex: Female
  Weight: 90.72 kg

DRUGS (16)
  1. HUMALOG MIX [Concomitant]
     Active Substance: INSULIN LISPRO
  2. NORVASC [Concomitant]
     Active Substance: AMLODIPINE BESYLATE
  3. ACTOS [Concomitant]
     Active Substance: PIOGLITAZONE HYDROCHLORIDE
  4. PAXIL [Concomitant]
     Active Substance: PAROXETINE HYDROCHLORIDE
  5. PROTONIX [Concomitant]
     Active Substance: PANTOPRAZOLE SODIUM
  6. NIASPAN [Concomitant]
     Active Substance: NIACIN
  7. FOLIC ACID. [Concomitant]
     Active Substance: FOLIC ACID
  8. LETAIRIS [Suspect]
     Active Substance: AMBRISENTAN
     Indication: PULMONARY ARTERIAL HYPERTENSION
     Route: 048
     Dates: start: 20090416
  9. COREG [Concomitant]
     Active Substance: CARVEDILOL
  10. ZETIA [Concomitant]
     Active Substance: EZETIMIBE
  11. LANTUS [Concomitant]
     Active Substance: INSULIN GLARGINE
  12. GLUCOPHAGE [Concomitant]
     Active Substance: METFORMIN HYDROCHLORIDE
  13. UROQUID [Concomitant]
  14. LASIX [Concomitant]
     Active Substance: FUROSEMIDE
  15. AVAPRO [Concomitant]
     Active Substance: IRBESARTAN
  16. CALCITROL [Concomitant]
     Active Substance: CALCITRIOL

REACTIONS (3)
  - Unevaluable event [Unknown]
  - Fatigue [Unknown]
  - Peripheral swelling [Unknown]
